FAERS Safety Report 13006841 (Version 1)
Quarter: 2016Q4

REPORT INFORMATION
  Report Type: Spontaneous
  Country: US (occurrence: US)
  Receive Date: 20161207
  Receipt Date: 20161207
  Transmission Date: 20170207
  Serious: Yes (Other)
  Sender: FDA-Public Use
  Company Number: US-CELGENEUS-USA-2016118056

PATIENT

DRUGS (3)
  1. POMALYST [Suspect]
     Active Substance: POMALIDOMIDE
     Dosage: 8MG
     Route: 048
  2. POMALYST [Suspect]
     Active Substance: POMALIDOMIDE
     Indication: ACUTE MYELOID LEUKAEMIA
     Dosage: 2MG
     Route: 048
  3. POMALYST [Suspect]
     Active Substance: POMALIDOMIDE
     Indication: MYELODYSPLASTIC SYNDROME
     Dosage: 4MG
     Route: 048

REACTIONS (10)
  - Alanine aminotransferase increased [Unknown]
  - White blood cell count decreased [Unknown]
  - Disease progression [Unknown]
  - Pyrexia [Unknown]
  - Mucosal inflammation [Unknown]
  - Blood creatinine increased [Unknown]
  - Hypoxia [Unknown]
  - Fatigue [Unknown]
  - Rash [Unknown]
  - Aspartate aminotransferase increased [Unknown]
